FAERS Safety Report 19717547 (Version 1)
Quarter: 2021Q3

REPORT INFORMATION
  Report Type: Spontaneous
  Country: US (occurrence: US)
  Receive Date: 20210818
  Receipt Date: 20210818
  Transmission Date: 20211014
  Serious: No
  Sender: FDA-Public Use
  Company Number: US-PFIZER INC-2021599256

PATIENT
  Age: 59 Year
  Sex: Female

DRUGS (1)
  1. XELJANZ XR [Suspect]
     Active Substance: TOFACITINIB CITRATE
     Indication: CROHN^S DISEASE
     Dosage: 11 MG, DAILY
     Route: 048
     Dates: start: 20201002

REACTIONS (3)
  - Oral pain [Unknown]
  - Off label use [Unknown]
  - Feeding disorder [Unknown]

NARRATIVE: CASE EVENT DATE: 20201002
